FAERS Safety Report 4918944-0 (Version None)
Quarter: 2006Q1

REPORT INFORMATION
  Report Type: 
  Country: None (occurrence: None)
  Receive Date: 20060222
  Receipt Date: 20060220
  Transmission Date: 20060701
  Serious: Yes (Hospitalization)
  Sender: FDA-Public Use
  Company Number: US-GLAXOSMITHKLINE-A0594392A

PATIENT
  Age: 73 Year
  Sex: Female

DRUGS (7)
  1. AVANDIA [Suspect]
     Indication: DIABETES MELLITUS NON-INSULIN-DEPENDENT
     Dosage: 8MG PER DAY
     Route: 048
  2. ISORDIL [Concomitant]
  3. DIABETA [Concomitant]
  4. LOPRESSOR [Concomitant]
  5. MULTI-VITAMIN [Concomitant]
  6. FLAX SEED [Concomitant]
  7. CALCIUM WITH VITAMIN D [Concomitant]

REACTIONS (14)
  - ADVERSE EVENT [None]
  - ATRIAL FIBRILLATION [None]
  - BLOOD GLUCOSE INCREASED [None]
  - BLOOD POTASSIUM INCREASED [None]
  - CARDIAC FAILURE CONGESTIVE [None]
  - DEPRESSED LEVEL OF CONSCIOUSNESS [None]
  - FLUID RETENTION [None]
  - INFLUENZA [None]
  - INTESTINAL OBSTRUCTION [None]
  - NAUSEA [None]
  - PNEUMONIA [None]
  - PYREXIA [None]
  - VOMITING [None]
  - WEIGHT DECREASED [None]
